FAERS Safety Report 10012206 (Version 1)
Quarter: 2014Q1

REPORT INFORMATION
  Report Type: Spontaneous
  Country: NL (occurrence: NL)
  Receive Date: 20140314
  Receipt Date: 20140314
  Transmission Date: 20141002
  Serious: Yes (Other)
  Sender: FDA-Public Use
  Company Number: PHHY2014NL027636

PATIENT
  Age: 67 Year
  Sex: Male

DRUGS (1)
  1. IBUPROFEN [Suspect]
     Indication: RHEUMATOID ARTHRITIS

REACTIONS (5)
  - Gastrointestinal disorder [Recovered/Resolved]
  - Iron deficiency anaemia [Recovered/Resolved]
  - Occult blood positive [Recovered/Resolved]
  - Erythema [Recovered/Resolved]
  - Intestinal ulcer [Recovered/Resolved]
